FAERS Safety Report 9342898 (Version 1)
Quarter: 2013Q2

REPORT INFORMATION
  Report Type: Spontaneous
  Country: CN (occurrence: CN)
  Receive Date: 20130611
  Receipt Date: 20130611
  Transmission Date: 20140414
  Serious: Yes (Life-Threatening)
  Sender: FDA-Public Use
  Company Number: CN-GLAXOSMITHKLINE-B0898494A

PATIENT
  Age: 73 Year
  Sex: Female
  Weight: 51 kg

DRUGS (1)
  1. VENTOLIN [Suspect]
     Indication: BRONCHIAL DISORDER
     Dosage: 2ML TWICE PER DAY
     Route: 055
     Dates: start: 20121009, end: 20121009

REACTIONS (5)
  - Supraventricular tachycardia [Recovered/Resolved]
  - Hyperhidrosis [Recovered/Resolved]
  - Palpitations [Recovered/Resolved]
  - Chest pain [Recovered/Resolved]
  - Tenderness [Recovered/Resolved]
